FAERS Safety Report 8158871-1 (Version None)
Quarter: 2012Q1

REPORT INFORMATION
  Report Type: 
  Country: None (occurrence: None)
  Receive Date: 20120223
  Receipt Date: 20120215
  Transmission Date: 20120608
  Serious: Yes (Other)
  Sender: FDA-Public Use
  Company Number: CA-PFIZER INC-2012042156

PATIENT
  Sex: Male

DRUGS (3)
  1. ALCOHOL [Suspect]
  2. CELEBREX [Suspect]
     Indication: BACK PAIN
     Dosage: 400 MG (200MG X 2 CAPSULES), SINGLE DOSE
     Dates: start: 20120201
  3. CELEBREX [Suspect]
     Indication: PAIN

REACTIONS (2)
  - CONVULSION [None]
  - FEELING HOT [None]
